FAERS Safety Report 5767323-5 (Version None)
Quarter: 2008Q2

REPORT INFORMATION
  Report Type: 
  Country: None (occurrence: None)
  Receive Date: 20080606
  Receipt Date: 20080522
  Transmission Date: 20081010
  Serious: Yes (Other)
  Sender: FDA-Public Use
  Company Number: 220001J08DEU

PATIENT
  Age: 12 Year
  Sex: Male

DRUGS (1)
  1. SAIZEN [(SOMATROPPIN (RDNA ORIGIN) FOR INJECTION)] (SOMATROPIN) [Suspect]
     Dates: start: 20080507

REACTIONS (1)
  - CONVULSION [None]
